FAERS Safety Report 9282517 (Version 1)
Quarter: 2013Q2

REPORT INFORMATION
  Report Type: Spontaneous
  Country: US (occurrence: None)
  Receive Date: 20130509
  Receipt Date: 20130509
  Transmission Date: 20140414
  Serious: No
  Sender: FDA-Public Use
  Company Number: None

PATIENT
  Age: 75 Year
  Sex: Male

DRUGS (1)
  1. LOSARTAN [Suspect]
     Indication: DRUG-INDUCED LIVER INJURY
     Dates: start: 2007, end: 200907

REACTIONS (7)
  - Cholestasis [None]
  - Drug-induced liver injury [None]
  - Malaise [None]
  - Hypogeusia [None]
  - Decreased appetite [None]
  - Weight decreased [None]
  - Respiratory disorder [None]
